FAERS Safety Report 4477728-0 (Version None)
Quarter: 2004Q4

REPORT INFORMATION
  Report Type: 
  Country: None (occurrence: None)
  Receive Date: 20041014
  Receipt Date: 20041001
  Transmission Date: 20050328
  Serious: Yes (Hospitalization)
  Sender: FDA-Public Use
  Company Number: A001-002-006240

PATIENT
  Age: 27 Year
  Sex: Female

DRUGS (4)
  1. ARICEPT [Suspect]
     Dosage: 35 MG, ORAL
     Route: 048
  2. VERAPAMIL SR (VERAPAMIL HYDROCHLORIDE) [Concomitant]
  3. SIMVASTATIN [Concomitant]
  4. HYDROCHLOROTHIAZIDE [Concomitant]

REACTIONS (3)
  - CHOLINERGIC SYNDROME [None]
  - OVERDOSE [None]
  - SINUS TACHYCARDIA [None]
